FAERS Safety Report 15814335 (Version 2)
Quarter: 2019Q1

REPORT INFORMATION
  Report Type: Spontaneous
  Country: FR (occurrence: FR)
  Receive Date: 20190111
  Receipt Date: 20190124
  Transmission Date: 20190417
  Serious: Yes (Death, Life-Threatening, Hospitalization)
  Sender: FDA-Public Use
  Company Number: FR-PFIZER INC-2019013448

PATIENT
  Age: 64 Year
  Sex: Male
  Weight: 96 kg

DRUGS (6)
  1. MERONEM [Suspect]
     Active Substance: MEROPENEM
     Dosage: UNK
     Dates: end: 20120409
  2. DUROGESIC [Suspect]
     Active Substance: FENTANYL
     Dosage: UNK UNK, SINGLE
     Route: 062
     Dates: start: 20120330, end: 20120401
  3. AUGMENTIN [Concomitant]
     Active Substance: AMOXICILLIN\CLAVULANATE POTASSIUM
     Dosage: 4 G, 1X/DAY
     Dates: start: 20120328, end: 20120403
  4. ACTISKENAN [Suspect]
     Active Substance: MORPHINE SULFATE
     Dosage: 20 MG, 1X/DAY
     Route: 048
     Dates: start: 20120325, end: 20120330
  5. CIPRO [Suspect]
     Active Substance: CIPROFLOXACIN HYDROCHLORIDE
     Dosage: 1000 MG, 1X/DAY
     Dates: start: 20120402
  6. ACTISKENAN [Suspect]
     Active Substance: MORPHINE SULFATE
     Dosage: 40 MG, 1X/DAY
     Route: 048
     Dates: start: 20120330, end: 20120401

REACTIONS (8)
  - Respiratory distress [Fatal]
  - Accidental overdose [Fatal]
  - Off label use [Unknown]
  - Depressed level of consciousness [Unknown]
  - Cognitive disorder [Unknown]
  - Acute pulmonary oedema [Unknown]
  - Renal failure [Unknown]
  - Hepatocellular injury [Unknown]

NARRATIVE: CASE EVENT DATE: 2012
